FAERS Safety Report 7961364-5 (Version None)
Quarter: 2011Q4

REPORT INFORMATION
  Report Type: 
  Country: None (occurrence: None)
  Receive Date: 20111207
  Receipt Date: 20111124
  Transmission Date: 20120403
  Serious: Yes (Other)
  Sender: FDA-Public Use
  Company Number: KR-ELI_LILLY_AND_COMPANY-KR201110004279

PATIENT
  Age: 67 Year
  Sex: Male

DRUGS (3)
  1. CIALIS [Suspect]
     Dosage: 20 MG, PRN
     Route: 048
     Dates: start: 20080101
  2. ANTIHYPERTENSIVES [Concomitant]
  3. CIALIS [Suspect]
     Dosage: 10 MG

REACTIONS (3)
  - CATARACT [None]
  - GLAUCOMA [None]
  - INTRAOCULAR PRESSURE INCREASED [None]
